FAERS Safety Report 18372534 (Version 1)
Quarter: 2020Q4

REPORT INFORMATION
  Report Type: Report from Study
  Country: DE (occurrence: DE)
  Receive Date: 20201012
  Receipt Date: 20201012
  Transmission Date: 20210114
  Serious: Yes (Death, Hospitalization, Other)
  Sender: FDA-Public Use
  Company Number: DE-MYLANLABS-2020M1085179

PATIENT
  Age: 74 Year
  Sex: Female
  Weight: 60 kg

DRUGS (26)
  1. FOLIC ACID. [Concomitant]
     Active Substance: FOLIC ACID
     Indication: MYELODYSPLASTIC SYNDROME
     Dosage: 5 MG, QD (1-0-0-0)
     Route: 065
     Dates: start: 20180920, end: 20200217
  2. REVLIMID [Concomitant]
     Active Substance: LENALIDOMIDE
     Indication: MYELODYSPLASTIC SYNDROME
     Dosage: 10 MG, QD (D1-21; QD28)
     Route: 065
     Dates: start: 20161031, end: 20171217
  3. EXJADE [Suspect]
     Active Substance: DEFERASIROX
     Dosage: UNK
     Route: 065
     Dates: start: 20180219, end: 20180502
  4. EXJADE [Suspect]
     Active Substance: DEFERASIROX
     Dosage: 180 MG (9,64 MG/KG BODYWEIGHT/DAY= 3)
     Route: 065
     Dates: start: 20190916, end: 20200106
  5. EXJADE [Suspect]
     Active Substance: DEFERASIROX
     Dosage: 180 MG (6,43 MG/KG BODYWEIGHT/DAY= 2)
     Route: 065
     Dates: start: 20190706, end: 20190821
  6. DUSPATAL                           /00139403/ [Concomitant]
     Indication: DIARRHOEA
  7. CIPROFLOXACIN. [Concomitant]
     Active Substance: CIPROFLOXACIN
     Indication: PROPHYLAXIS
     Dosage: 2000 MILLIGRAM, QD(1000 MG, BID)
     Route: 065
     Dates: start: 20180614, end: 20180621
  8. GRANISETRON [Concomitant]
     Active Substance: GRANISETRON
     Indication: PROPHYLAXIS
     Dosage: 2 MG, QD
     Route: 065
     Dates: start: 20170420, end: 20190930
  9. COBALAMIN [Concomitant]
     Active Substance: COBALAMIN
     Indication: VITAMIN B12 DEFICIENCY
     Dosage: 1000 UG, Q4W
     Route: 058
     Dates: start: 20181214, end: 20200126
  10. EXJADE [Suspect]
     Active Substance: DEFERASIROX
     Dosage: 180 MG (6 MG/KG BODY WEIGHT/DAY=2 TABLETS A 180 MG)
     Route: 065
     Dates: start: 20190110, end: 20190604
  11. EXJADE [Suspect]
     Active Substance: DEFERASIROX
     Dosage: 125 MG, (2.05 MG/KG BODY WEIGHT/DAY)EQUAL TO 1 TABLETS
     Route: 065
     Dates: start: 20170615, end: 20170709
  12. EXJADE [Suspect]
     Active Substance: DEFERASIROX
     Dosage: 90 MG, (1.45 MG/KG BODY WEIGHT/DAY)
     Route: 065
     Dates: start: 20180503, end: 20180703
  13. EXJADE [Suspect]
     Active Substance: DEFERASIROX
     Dosage: 180 MG (9,64 MG/KG BODYWEIGHT/DAY= 3)
     Route: 065
     Dates: start: 20200119, end: 20200211
  14. EXJADE [Suspect]
     Active Substance: DEFERASIROX
     Indication: MYELODYSPLASTIC SYNDROME
     Dosage: UNK
     Route: 065
     Dates: start: 20200106, end: 20200118
  15. EXJADE [Suspect]
     Active Substance: DEFERASIROX
     Dosage: 125 MG, (4.91 MG/KG BODY WEIGHT/DAY)EQUAL TO 2 TABLETS
     Route: 065
     Dates: start: 20170710, end: 20170912
  16. EXJADE [Suspect]
     Active Substance: DEFERASIROX
     Dosage: 125 MG,(4.1 MG/KG BODY WEIGHT/DAY)EQUAL TO 2 TABLETS
     Route: 065
     Dates: start: 20170201, end: 20170614
  17. EXJADE [Suspect]
     Active Substance: DEFERASIROX
     Dosage: UNK
     Route: 065
     Dates: start: 20190605, end: 20190705
  18. L THYROXIN [Concomitant]
     Active Substance: LEVOTHYROXINE SODIUM
     Indication: HYPOTHYROIDISM
     Dosage: 25 UG, QD (1-0-0)
     Route: 065
     Dates: end: 20180503
  19. EXJADE [Suspect]
     Active Substance: DEFERASIROX
     Dosage: 180 MG (2.9 MG/KG BODY WEIGHT/DAY)
     Route: 065
     Dates: start: 20180704, end: 20190109
  20. EXJADE [Suspect]
     Active Substance: DEFERASIROX
     Dosage: 90 MG, (1.5 MG/KG BODY WEIGHT/DAY)EQUAL TO 1 TABLETS
     Route: 065
     Dates: start: 20170913, end: 20180218
  21. EXJADE [Suspect]
     Active Substance: DEFERASIROX
     Dosage: 180 MG (9,64 MG/KG BODYWEIGHT/DAY= 3)
     Route: 065
     Dates: start: 20190822, end: 20190915
  22. IBUPROFEN. [Concomitant]
     Active Substance: IBUPROFEN
     Indication: SPINAL PAIN
     Dosage: UNK UNK, PRN
     Route: 065
     Dates: start: 20170419, end: 20170517
  23. EXJADE [Suspect]
     Active Substance: DEFERASIROX
     Dosage: 125 MG, (2.08 MG/KG BODY WEIGHT/DAY)=1 TABLET A 125 MG
     Route: 065
     Dates: start: 20161116, end: 20170131
  24. AMPHO MORONAL [Concomitant]
     Active Substance: AMPHOTERICIN B
     Indication: PROPHYLAXIS
     Dosage: 200000 IE, QD
     Route: 065
     Dates: start: 20180420, end: 20200128
  25. AZACITIDINE. [Suspect]
     Active Substance: AZACITIDINE
     Indication: MYELODYSPLASTIC SYNDROME
     Dosage: 75 MG/M2, (DAY 1-7 AT A CYCLE LENGTH OF 28 DAYS)
     Route: 058
     Dates: start: 20180423, end: 20191126
  26. DUSPATAL                           /00139403/ [Concomitant]
     Indication: CONSTIPATION
     Dosage: UNK
     Route: 065
     Dates: start: 20190425, end: 20190510

REACTIONS (11)
  - White blood cell count decreased [Fatal]
  - Neutropenia [Unknown]
  - Pancytopenia [Not Recovered/Not Resolved]
  - Thrombocytopenia [Unknown]
  - Myelosuppression [Unknown]
  - Platelet count decreased [Recovered/Resolved]
  - Leukopenia [Unknown]
  - Neutrophil count decreased [Unknown]
  - Soft tissue infection [Recovered/Resolved]
  - Blood disorder [Unknown]
  - Anaemia [Recovering/Resolving]

NARRATIVE: CASE EVENT DATE: 20161214
